FAERS Safety Report 5139481-7 (Version None)
Quarter: 2006Q4

REPORT INFORMATION
  Report Type: 
  Country: None (occurrence: None)
  Receive Date: 20061024
  Receipt Date: 20061013
  Transmission Date: 20070319
  Serious: Yes (Other)
  Sender: FDA-Public Use
  Company Number: 2006112099

PATIENT
  Sex: Male

DRUGS (2)
  1. XANAX [Suspect]
     Dates: start: 19840101
  2. ALPRAZOLAM [Suspect]
     Dates: start: 20060101, end: 20060101

REACTIONS (5)
  - DRY MOUTH [None]
  - FATIGUE [None]
  - IMPAIRED DRIVING ABILITY [None]
  - PHARMACEUTICAL PRODUCT COMPLAINT [None]
  - POOR QUALITY DRUG ADMINISTERED [None]
